FAERS Safety Report 6922566-X (Version None)
Quarter: 2010Q3

REPORT INFORMATION
  Report Type: 
  Country: None (occurrence: None)
  Receive Date: 20100811
  Receipt Date: 20100728
  Transmission Date: 20110219
  Serious: Yes (Hospitalization)
  Sender: FDA-Public Use
  Company Number: 001888

PATIENT
  Sex: Female
  Weight: 99.3377 kg

DRUGS (2)
  1. LACOSAMIDE [Suspect]
     Indication: EPILEPSY
     Dosage: (150 MG BID ORAL)
     Route: 048
     Dates: start: 20090317
  2. LACOSAMIDE [Suspect]

REACTIONS (7)
  - CONTUSION [None]
  - CONVULSION [None]
  - EAR INJURY [None]
  - FACE INJURY [None]
  - FOOT FRACTURE [None]
  - LACERATION [None]
  - ROAD TRAFFIC ACCIDENT [None]
